FAERS Safety Report 9773075 (Version 1)
Quarter: 2013Q4

REPORT INFORMATION
  Report Type: Spontaneous
  Country: US (occurrence: US)
  Receive Date: 20131219
  Receipt Date: 20131219
  Transmission Date: 20140711
  Serious: Yes (Other)
  Sender: FDA-Public Use
  Company Number: US-PFIZER INC-2013359702

PATIENT
  Age: 49 Year
  Sex: Female
  Weight: 68.03 kg

DRUGS (5)
  1. ADVIL [Suspect]
     Indication: BACK PAIN
     Dosage: 600 MG, TWO TIMES A DAY
     Dates: end: 201310
  2. ADVIL [Suspect]
     Indication: PAIN IN EXTREMITY
  3. ALEVE [Suspect]
     Indication: BACK PAIN
     Dosage: 220 MG, TWO TIMES A DAY
     Dates: start: 2013, end: 201310
  4. ALEVE [Suspect]
     Indication: PAIN IN EXTREMITY
  5. ZYRTEC [Suspect]
     Indication: HYPERSENSITIVITY
     Dosage: UNK

REACTIONS (4)
  - Hypersensitivity [Unknown]
  - Swelling [Unknown]
  - Lip swelling [Unknown]
  - Drug ineffective [Unknown]
